FAERS Safety Report 19501998 (Version 1)
Quarter: 2021Q3

REPORT INFORMATION
  Report Type: Spontaneous
  Country: US (occurrence: US)
  Receive Date: 20210707
  Receipt Date: 20210707
  Transmission Date: 20211014
  Serious: No
  Sender: FDA-Public Use
  Company Number: None

PATIENT
  Age: 78 Year
  Sex: Female
  Weight: 70.2 kg

DRUGS (7)
  1. VITAMIN B12 [Concomitant]
     Active Substance: CYANOCOBALAMIN
  2. OCUVITE [Concomitant]
     Active Substance: VITAMINS
  3. CYSTOLIC [Concomitant]
  4. CRESTOR [Concomitant]
     Active Substance: ROSUVASTATIN CALCIUM
  5. VITAMIN D3 [Concomitant]
     Active Substance: CHOLECALCIFEROL
  6. COENZYME Q10 [Concomitant]
     Active Substance: DIETARY SUPPLEMENT\UBIDECARENONE
  7. NULYTELY [Suspect]
     Active Substance: POLYETHYLENE GLYCOL 3350\POTASSIUM CHLORIDE\SODIUM BICARBONATE\SODIUM CHLORIDE
     Indication: COLONOSCOPY
     Dosage: ?          QUANTITY:32 OUNCE(S);OTHER FREQUENCY:1/2 Q 10 HOURS;?
     Route: 048
     Dates: start: 20210622, end: 20210622

REACTIONS (8)
  - Vomiting [None]
  - Dizziness [None]
  - Swelling face [None]
  - Nausea [None]
  - Asthenia [None]
  - Fatigue [None]
  - Hypersensitivity [None]
  - Infrequent bowel movements [None]

NARRATIVE: CASE EVENT DATE: 20210622
